FAERS Safety Report 5866174-0 (Version None)
Quarter: 2008Q3

REPORT INFORMATION
  Report Type: 
  Country: None (occurrence: None)
  Receive Date: 20080829
  Receipt Date: 20080822
  Transmission Date: 20090109
  Serious: Yes (Hospitalization)
  Sender: FDA-Public Use
  Company Number: JP-MERCK-0808USA04626

PATIENT
  Age: 83 Year
  Sex: Female

DRUGS (8)
  1. FOSAMAX [Suspect]
     Indication: OSTEOPOROSIS
     Route: 048
     Dates: start: 20080812, end: 20080801
  2. AZULFIDINE EN-TABS [Concomitant]
     Indication: ARRHYTHMIA
     Route: 048
  3. MAINTATE [Concomitant]
     Indication: ARRHYTHMIA
     Route: 048
  4. SUCRALFATE [Concomitant]
     Indication: GASTROINTESTINAL DISORDER
     Route: 048
  5. RHEUMATREX [Concomitant]
     Indication: RHEUMATOID ARTHRITIS
     Route: 048
  6. FOLIAMIN [Concomitant]
     Route: 048
  7. MAGMITT [Concomitant]
     Route: 048
  8. PREDNISOLONE [Concomitant]
     Indication: RHEUMATOID ARTHRITIS
     Route: 048

REACTIONS (1)
  - DYSPHONIA [None]
